FAERS Safety Report 14692525 (Version 3)
Quarter: 2018Q2

REPORT INFORMATION
  Report Type: Spontaneous
  Country: US (occurrence: US)
  Receive Date: 20180329
  Receipt Date: 20180424
  Transmission Date: 20180711
  Serious: No
  Sender: FDA-Public Use
  Company Number: US-TEVA-2018-US-866941

PATIENT
  Sex: Female

DRUGS (1)
  1. AMOXICILLIN. [Suspect]
     Active Substance: AMOXICILLIN
     Dosage: STRENGTH: 400 MG/ 5 ML
     Route: 048
     Dates: start: 20180226

REACTIONS (2)
  - Vomiting [Recovered/Resolved]
  - Product taste abnormal [Unknown]
